FAERS Safety Report 14515936 (Version 3)
Quarter: 2018Q2

REPORT INFORMATION
  Report Type: Spontaneous
  Country: DE (occurrence: DE)
  Receive Date: 20180211
  Receipt Date: 20180518
  Transmission Date: 20180711
  Serious: Yes (Other)
  Sender: FDA-Public Use
  Company Number: DE-ASTRAZENECA-2018SE16751

PATIENT
  Sex: Male

DRUGS (2)
  1. GLYCOPYRRONIUM BROMIDE [Concomitant]
     Active Substance: GLYCOPYRRONIUM
     Indication: PRODUCT USED FOR UNKNOWN INDICATION
  2. MIFLONIDE BREEZHALER [Suspect]
     Active Substance: BUDESONIDE
     Indication: CHRONIC OBSTRUCTIVE PULMONARY DISEASE
     Dosage: 2 DF DAILY (NON AZ-PRODUCT)
     Route: 055
     Dates: start: 20171024

REACTIONS (3)
  - Wrong technique in product usage process [Unknown]
  - Paraesthesia oral [Unknown]
  - Foreign body aspiration [Unknown]

NARRATIVE: CASE EVENT DATE: 20171024
